FAERS Safety Report 10416539 (Version 1)
Quarter: 2014Q3

REPORT INFORMATION
  Report Type: Spontaneous
  Country: RU (occurrence: RU)
  Receive Date: 20140828
  Receipt Date: 20140828
  Transmission Date: 20150326
  Serious: Yes (Hospitalization)
  Sender: FDA-Public Use
  Company Number: RU-VIIV HEALTHCARE LIMITED-B1026137A

PATIENT
  Sex: Male
  Weight: 57 kg

DRUGS (2)
  1. KIVEXA [Suspect]
     Active Substance: ABACAVIR SULFATE\LAMIVUDINE
     Indication: HIV INFECTION
     Route: 065
     Dates: start: 201401
  2. KALETRA [Suspect]
     Active Substance: LOPINAVIR\RITONAVIR
     Indication: HIV INFECTION
     Route: 065
     Dates: start: 201401

REACTIONS (11)
  - Chronic gastritis [Unknown]
  - Insomnia [Not Recovered/Not Resolved]
  - Duodenitis [Unknown]
  - Rhinorrhoea [Unknown]
  - Bronchopneumonia [Unknown]
  - Lipodystrophy acquired [Unknown]
  - Malaise [Unknown]
  - Apathy [Unknown]
  - Fatigue [Unknown]
  - Decreased appetite [Not Recovered/Not Resolved]
  - Feeling abnormal [Unknown]

NARRATIVE: CASE EVENT DATE: 2014
